FAERS Safety Report 9027835 (Version 1)
Quarter: 2013Q1

REPORT INFORMATION
  Report Type: Spontaneous
  Country: US (occurrence: US)
  Receive Date: 20130124
  Receipt Date: 20130124
  Transmission Date: 20140127
  Serious: Yes (Other)
  Sender: FDA-Public Use
  Company Number: US-JNJFOC-20130108784

PATIENT
  Sex: Male
  Weight: 72.58 kg

DRUGS (9)
  1. INTELENCE [Suspect]
     Indication: HIV INFECTION
     Route: 048
     Dates: start: 2009
  2. EPZICOM [Suspect]
     Indication: HIV INFECTION
     Dosage: 600/300MG
     Route: 048
     Dates: start: 2009
  3. ISENTRESS [Suspect]
     Indication: HIV INFECTION
     Route: 048
     Dates: start: 2009
  4. BABY ASPIRIN [Concomitant]
     Route: 048
  5. NIASPAN [Concomitant]
     Indication: CARDIOMEGALY
     Route: 048
  6. PLAVIX [Concomitant]
     Indication: CARDIAC DISORDER
     Route: 048
  7. LISINOPRIL [Concomitant]
     Indication: BLOOD PRESSURE
     Route: 048
  8. AVODART [Concomitant]
     Indication: BENIGN PROSTATIC HYPERPLASIA
     Route: 065
  9. CRESTOR [Concomitant]
     Indication: BLOOD CHOLESTEROL
     Route: 065

REACTIONS (5)
  - Weight increased [Not Recovered/Not Resolved]
  - Gastrooesophageal reflux disease [Not Recovered/Not Resolved]
  - Renal disorder [Not Recovered/Not Resolved]
  - Agitation [Not Recovered/Not Resolved]
  - Initial insomnia [Recovering/Resolving]
